FAERS Safety Report 22898304 (Version 4)
Quarter: 2023Q4

REPORT INFORMATION
  Report Type: Spontaneous
  Country: JP (occurrence: JP)
  Receive Date: 20230903
  Receipt Date: 20231030
  Transmission Date: 20240109
  Serious: Yes (Hospitalization)
  Sender: FDA-Public Use
  Company Number: JP-MSD-M2023-35171

PATIENT
  Age: 85 Year
  Sex: Male
  Weight: 75 kg

DRUGS (14)
  1. LAGEVRIO [Suspect]
     Active Substance: MOLNUPIRAVIR
     Indication: COVID-19 treatment
     Dosage: 800 MILLIGRAM, BID
     Route: 048
     Dates: start: 20220830, end: 20220903
  2. LOXOPROFEN SODIUM DIHYDRATE [Concomitant]
     Active Substance: LOXOPROFEN SODIUM DIHYDRATE
     Indication: Pyrexia
     Dosage: 60 MILLIGRAM, PRN
     Route: 048
     Dates: start: 20220830, end: 20220903
  3. GLUTAMINE\SODIUM GUALENATE [Concomitant]
     Active Substance: GLUTAMINE\SODIUM GUALENATE
     Dosage: 0.5 GRAM, PRN
     Route: 048
     Dates: start: 20220830, end: 20220903
  4. CARBOCYSTEINE [Concomitant]
     Active Substance: CARBOCYSTEINE
     Indication: Productive cough
     Dosage: 1500 MILLIGRAM
     Route: 048
     Dates: start: 20220830, end: 20220906
  5. TRANEXAMIC ACID [Concomitant]
     Active Substance: TRANEXAMIC ACID
     Indication: Oropharyngeal pain
     Dosage: 750 MILLIGRAM
     Route: 048
     Dates: start: 20220830, end: 20220903
  6. LASCUFLOXACIN HYDROCHLORIDE [Concomitant]
     Active Substance: LASCUFLOXACIN HYDROCHLORIDE
     Indication: Sputum purulent
     Dosage: 75 MILLIGRAM
     Route: 048
     Dates: start: 20220830, end: 20220906
  7. CAFFEINE [Concomitant]
     Active Substance: CAFFEINE
     Indication: Rhinorrhoea
     Dosage: 0.9 GRAM
     Route: 048
     Dates: start: 20220830, end: 20220906
  8. CAFFEINE [Concomitant]
     Active Substance: CAFFEINE
     Indication: Cough
  9. DIMEMORFAN PHOSPHATE [Concomitant]
     Active Substance: DIMEMORFAN PHOSPHATE
     Indication: Rhinorrhoea
     Dosage: 1.8 GRAM
     Route: 048
     Dates: start: 20220830, end: 20220906
  10. DIMEMORFAN PHOSPHATE [Concomitant]
     Active Substance: DIMEMORFAN PHOSPHATE
     Indication: Cough
  11. PERIACTIN [Concomitant]
     Active Substance: CYPROHEPTADINE HYDROCHLORIDE
     Indication: Rhinorrhoea
     Dosage: 1.2 GRAM
     Route: 048
     Dates: start: 20220830, end: 20220906
  12. PERIACTIN [Concomitant]
     Active Substance: CYPROHEPTADINE HYDROCHLORIDE
     Indication: Cough
  13. TEPRENONE [Concomitant]
     Active Substance: TEPRENONE
     Indication: Rhinorrhoea
     Dosage: 4.5 GRAM
     Route: 048
     Dates: start: 20220830, end: 20220906
  14. TEPRENONE [Concomitant]
     Active Substance: TEPRENONE
     Indication: Cough

REACTIONS (2)
  - COVID-19 [Recovered/Resolved]
  - Bronchitis [Recovered/Resolved]

NARRATIVE: CASE EVENT DATE: 20220830
